FAERS Safety Report 23048457 (Version 1)
Quarter: 2023Q4

REPORT INFORMATION
  Report Type: Spontaneous
  Country: ES (occurrence: ES)
  Receive Date: 20231010
  Receipt Date: 20231010
  Transmission Date: 20240110
  Serious: Yes (Other)
  Sender: FDA-Public Use
  Company Number: None

PATIENT
  Age: 3 Month
  Sex: Female
  Weight: 5.18 kg

DRUGS (1)
  1. ONASEMNOGENE ABEPARVOVEC [Suspect]
     Active Substance: ONASEMNOGENE ABEPARVOVEC
     Indication: Spinal muscular atrophy
     Dosage: 30.1 ML, ONCE/SINGLE
     Route: 042
     Dates: start: 20230209, end: 20230209

REACTIONS (4)
  - Decreased appetite [Recovered/Resolved]
  - Hypertransaminasaemia [Recovered/Resolved]
  - Thrombocytopenia [Recovered/Resolved]
  - Troponin increased [Recovered/Resolved]

NARRATIVE: CASE EVENT DATE: 20230210
